FAERS Safety Report 9171567 (Version 2)
Quarter: 2013Q3

REPORT INFORMATION
  Report Type: Spontaneous
  Country: US (occurrence: US)
  Receive Date: 20130319
  Receipt Date: 20130820
  Transmission Date: 20140515
  Serious: Yes (Death, Hospitalization)
  Sender: FDA-Public Use
  Company Number: US-GLAXOSMITHKLINE-A1016266A

PATIENT
  Age: 62 Year
  Sex: Female

DRUGS (1)
  1. AVANDIA [Suspect]
     Indication: DIABETES MELLITUS
     Route: 048
     Dates: start: 2007, end: 2009

REACTIONS (3)
  - Sudden cardiac death [Fatal]
  - Myocardial infarction [Unknown]
  - Hypertensive cardiomyopathy [Fatal]
